FAERS Safety Report 4904701-8 (Version None)
Quarter: 2006Q1

REPORT INFORMATION
  Report Type: 
  Country: None (occurrence: None)
  Receive Date: 20060208
  Receipt Date: 20050923
  Transmission Date: 20060701
  Serious: Yes (Other)
  Sender: FDA-Public Use
  Company Number: US-GLAXOSMITHKLINE-A0575686A

PATIENT
  Sex: Male

DRUGS (9)
  1. PAROXETINE HCL [Suspect]
     Indication: ANXIETY
     Dosage: 60MG PER DAY
     Route: 048
     Dates: start: 20050501
  2. MELLARIL [Concomitant]
  3. GEMFIBROZIL [Concomitant]
  4. SYNTHROID [Concomitant]
  5. NORVASC [Concomitant]
  6. NASACORT AQ [Concomitant]
  7. PRIMATENE [Concomitant]
  8. AUROBIN [Concomitant]
  9. ALBUTEROL [Concomitant]

REACTIONS (1)
  - MANIA [None]
